FAERS Safety Report 24943069 (Version 1)
Quarter: 2025Q1

REPORT INFORMATION
  Report Type: Spontaneous
  Country: US (occurrence: None)
  Receive Date: 20250207
  Receipt Date: 20250207
  Transmission Date: 20250409
  Serious: Yes (Death)
  Sender: FDA-CTU
  Company Number: None

PATIENT
  Sex: Female

DRUGS (11)
  1. TOBRAMYCIN [Suspect]
     Active Substance: TOBRAMYCIN
     Indication: Pneumonia
     Dosage: FREQUENCY : TWICE A DAY;?
     Route: 055
     Dates: start: 20230623
  2. ALBUTEROL NEB 1.25MG/3 [Concomitant]
  3. BACLOFEN TAB5MG [Concomitant]
  4. BENADRYL [Concomitant]
     Active Substance: DIPHENHYDRAMINE HYDROCHLORIDE
  5. BUDESONIDE SUS 1 MG/2ML [Concomitant]
  6. CARAFATE SUS 1GM/10ML [Concomitant]
  7. CETIRIZINE SOL 1MG/ML [Concomitant]
  8. FERROUS SULF ELX 220/5ML [Concomitant]
  9. KEPPRA SOL 100MG/ML [Concomitant]
  10. LORAZEPAM TAB2MG [Concomitant]
  11. OMEPRAZOLE + SUS SYRSPEND [Concomitant]

REACTIONS (1)
  - Death [None]
